FAERS Safety Report 8590926 (Version 3)
Quarter: 2013Q1

REPORT INFORMATION
  Report Type: Spontaneous
  Country: US (occurrence: US)
  Receive Date: 20120601
  Receipt Date: 20130328
  Transmission Date: 20140127
  Serious: Yes (Life-Threatening, Hospitalization, Congenital Anomaly)
  Sender: FDA-Public Use
  Company Number: US-GLAXOSMITHKLINE-A0979686A

PATIENT
  Age: 0 Year
  Sex: Male
  Weight: 2.6 kg

DRUGS (1)
  1. WELLBUTRIN [Suspect]
     Indication: PRODUCT USED FOR UNKNOWN INDICATION
     Route: 064

REACTIONS (5)
  - Bicuspid aortic valve [Not Recovered/Not Resolved]
  - Congenital hydrocephalus [Unknown]
  - Congenital anomaly [Unknown]
  - Hydrocele [Unknown]
  - Foetal exposure during pregnancy [Unknown]
